FAERS Safety Report 6027085-3 (Version None)
Quarter: 2009Q1

REPORT INFORMATION
  Report Type: 
  Country: None (occurrence: None)
  Receive Date: 20090105
  Receipt Date: 20081223
  Transmission Date: 20090719
  Serious: Yes (Hospitalization, Other)
  Sender: FDA-Public Use
  Company Number: US-ROCHE-601044

PATIENT
  Sex: Female
  Weight: 75.8 kg

DRUGS (3)
  1. BONIVA [Suspect]
     Indication: OSTEOPOROSIS
     Route: 048
     Dates: start: 20080901, end: 20081114
  2. TEGRETOL [Concomitant]
     Route: 048
     Dates: start: 20080701
  3. CADUET [Concomitant]
     Indication: HYPERTENSION
     Dosage: OTHER INDICATION: INCREASED CHOLESTEROL STRENGTH: 10/20 DOSE:1/2 DAILY
     Route: 048
     Dates: start: 20081001

REACTIONS (4)
  - BACK PAIN [None]
  - CHEST PAIN [None]
  - DIZZINESS [None]
  - SYNCOPE [None]
